FAERS Safety Report 7050609-4 (Version None)
Quarter: 2010Q4

REPORT INFORMATION
  Report Type: 
  Country: None (occurrence: None)
  Receive Date: 20101018
  Receipt Date: 20101006
  Transmission Date: 20110411
  Serious: Yes (Hospitalization)
  Sender: FDA-Public Use
  Company Number: US-ELI_LILLY_AND_COMPANY-US201010001972

PATIENT
  Sex: Female

DRUGS (3)
  1. HUMALOG MIX 50/50 [Suspect]
     Indication: DIABETES MELLITUS
     Dosage: 24 U, EACH MORNING
     Dates: start: 20100301
  2. HUMALOG MIX 50/50 [Suspect]
     Dosage: 28 U, DAILY (1/D)
     Dates: start: 20100301
  3. HUMALOG MIX 50/50 [Suspect]
     Dosage: 22 U, EACH EVENING
     Dates: start: 20100301

REACTIONS (5)
  - BLOOD GLUCOSE INCREASED [None]
  - DRUG DOSE OMISSION [None]
  - GALLBLADDER OPERATION [None]
  - INJECTION SITE HAEMATOMA [None]
  - KNEE ARTHROPLASTY [None]
